FAERS Safety Report 8574387-2 (Version None)
Quarter: 2012Q3

REPORT INFORMATION
  Report Type: 
  Country: None (occurrence: None)
  Receive Date: 20120806
  Receipt Date: 20120801
  Transmission Date: 20120928
  Serious: Yes (Hospitalization)
  Sender: FDA-Public Use
  Company Number: US-GILEAD-2012-0058245

PATIENT
  Sex: Male

DRUGS (2)
  1. TYVASO [Concomitant]
  2. LETAIRIS [Suspect]
     Indication: CONGENITAL PULMONARY HYPERTENSION
     Dosage: 5 MG, UNK
     Route: 048
     Dates: start: 20101230

REACTIONS (2)
  - FACE INJURY [None]
  - EPISTAXIS [None]
